FAERS Safety Report 4443515-2 (Version None)
Quarter: 2004Q3

REPORT INFORMATION
  Report Type: 
  Country: None (occurrence: None)
  Receive Date: 20040901
  Receipt Date: 20040817
  Transmission Date: 20050211
  Serious: No
  Sender: FDA-Public Use
  Company Number: 04P-163-0250434-00

PATIENT
  Age: 44 Year
  Sex: Female
  Weight: 90.7194 kg

DRUGS (7)
  1. HUMIRA [Suspect]
     Indication: RHEUMATOID ARTHRITIS
     Dosage: 40 MG, SUBCUTANEOUS
     Route: 058
  2. IBUPROFEN [Suspect]
     Dosage: 600 MG, 1 IN 6 HR
     Dates: start: 20040124, end: 20040128
  3. AMOXICILLIN [Suspect]
     Dosage: 500 MG, 1 IN 8 HR, PER ORAL
     Route: 048
     Dates: start: 20040124, end: 20040128
  4. METHOTREXATE [Concomitant]
  5. CELECOXIB [Concomitant]
  6. HYDROXYCHLOROQUINE  PHOSPHATE [Concomitant]
  7. FOLIC ACID [Concomitant]

REACTIONS (7)
  - HAEMOGLOBIN DECREASED [None]
  - INFLUENZA LIKE ILLNESS [None]
  - LYMPHADENOPATHY [None]
  - MENINGITIS ASEPTIC [None]
  - PLATELET COUNT DECREASED [None]
  - SYNOVITIS [None]
  - WHITE BLOOD CELL COUNT DECREASED [None]
